FAERS Safety Report 21837859 (Version 2)
Quarter: 2023Q1

REPORT INFORMATION
  Report Type: Spontaneous
  Country: US (occurrence: US)
  Receive Date: 20230109
  Receipt Date: 20230330
  Transmission Date: 20230418
  Serious: Yes (Hospitalization)
  Sender: FDA-Public Use
  Company Number: US-Calliditas-2022CAL00633

PATIENT
  Age: 63 Year
  Sex: Male

DRUGS (2)
  1. TARPEYO [Suspect]
     Active Substance: BUDESONIDE
     Indication: Haematuria
     Dosage: 16 MG ( 4MG CAPSULES) DAILY
     Route: 048
     Dates: start: 20220602
  2. FARXIGA [Concomitant]
     Active Substance: DAPAGLIFLOZIN PROPANEDIOL

REACTIONS (12)
  - COVID-19 [Recovering/Resolving]
  - Fatigue [Recovering/Resolving]
  - Dyspnoea [Recovering/Resolving]
  - Taste disorder [Recovering/Resolving]
  - Blood pressure increased [Unknown]
  - COVID-19 [Recovered/Resolved]
  - Post-acute COVID-19 syndrome [Recovering/Resolving]
  - Performance status decreased [Recovering/Resolving]
  - Cushingoid [Unknown]
  - Waist circumference increased [Unknown]
  - Feeling cold [Unknown]
  - Product dose omission issue [Recovered/Resolved]

NARRATIVE: CASE EVENT DATE: 20220801
